FAERS Safety Report 24744755 (Version 2)
Quarter: 2025Q1

REPORT INFORMATION
  Report Type: Report from Study
  Country: US (occurrence: US)
  Receive Date: 20241217
  Receipt Date: 20250219
  Transmission Date: 20250409
  Serious: Yes (Hospitalization, Other)
  Sender: TAKEDA
  Company Number: US-TAKEDA-2024TUS123233

PATIENT
  Age: 70 Year
  Sex: Female

DRUGS (19)
  1. TEDUGLUTIDE [Suspect]
     Active Substance: TEDUGLUTIDE
     Indication: Short-bowel syndrome
     Dosage: 3.63 MILLIGRAM, QD
     Dates: start: 20150515, end: 20160714
  2. TEDUGLUTIDE [Suspect]
     Active Substance: TEDUGLUTIDE
     Dosage: 3.63 MILLIGRAM, QD
     Dates: start: 20161020, end: 20181026
  3. TEDUGLUTIDE [Suspect]
     Active Substance: TEDUGLUTIDE
     Dosage: 3.18 MILLIGRAM, QD
     Dates: start: 20181026, end: 20200116
  4. TEDUGLUTIDE [Suspect]
     Active Substance: TEDUGLUTIDE
     Dosage: 3.3 MILLIGRAM, QD
     Dates: start: 20200914, end: 20201113
  5. TEDUGLUTIDE [Suspect]
     Active Substance: TEDUGLUTIDE
     Dosage: 2.8 MILLIGRAM, QD
     Dates: start: 20201113, end: 20220903
  6. TEDUGLUTIDE [Suspect]
     Active Substance: TEDUGLUTIDE
     Dosage: 2.8 MILLIGRAM, 4/WEEK
     Dates: start: 20220907, end: 20230208
  7. TEDUGLUTIDE [Suspect]
     Active Substance: TEDUGLUTIDE
     Dosage: 2.8 MILLIGRAM, 4/WEEK
     Dates: start: 20230607
  8. ROPINIROLE [Concomitant]
     Active Substance: ROPINIROLE
     Dosage: 0.5 MILLIGRAM, QD
  9. FERRIC POLYSACCHARIDE COMPLEX [Concomitant]
     Active Substance: FERRIC POLYSACCHARIDE COMPLEX
     Indication: Iron deficiency
     Dosage: 150 MILLIGRAM, BID
  10. COMPAZINE [Concomitant]
     Active Substance: PROCHLORPERAZINE MALEATE
  11. TOCOPHEROL [Concomitant]
     Active Substance: TOCOPHEROL
     Indication: Iron deficiency
     Dosage: UNK UNK, QD
  12. DEXILANT [Concomitant]
     Active Substance: DEXLANSOPRAZOLE
     Dosage: 60 MILLIGRAM, QD
  13. TRAZODONE [Concomitant]
     Active Substance: TRAZODONE HYDROCHLORIDE
     Indication: Depression
     Dosage: 150 MILLIGRAM, QD
  14. ROXICODONE [Concomitant]
     Active Substance: OXYCODONE HYDROCHLORIDE
     Dosage: 10 MILLIGRAM, QD
  15. LOPRESSOR [Concomitant]
     Active Substance: METOPROLOL TARTRATE
     Indication: Hypertension
     Dosage: 50 MILLIGRAM, BID
  16. OMEPRAZOLE [Concomitant]
     Active Substance: OMEPRAZOLE
     Dosage: 40 MILLIGRAM, QD
  17. RESTORIL [Concomitant]
     Active Substance: TEMAZEPAM
  18. MAXALT [Concomitant]
     Active Substance: RIZATRIPTAN BENZOATE
     Dosage: 10 MILLIGRAM, QD
  19. LOMOTIL [Concomitant]
     Active Substance: ATROPINE SULFATE\DIPHENOXYLATE HYDROCHLORIDE
     Indication: Diarrhoea

REACTIONS (3)
  - Transient ischaemic attack [Recovered/Resolved]
  - Abdominal pain [Recovered/Resolved]
  - COVID-19 [Recovered/Resolved]

NARRATIVE: CASE EVENT DATE: 20220903
